FAERS Safety Report 5815902-9 (Version None)
Quarter: 2008Q3

REPORT INFORMATION
  Report Type: 
  Country: None (occurrence: None)
  Receive Date: 20080710
  Receipt Date: 20071204
  Transmission Date: 20090109
  Serious: Yes (Death)
  Sender: FDA-Public Use
  Company Number: 2007-0009

PATIENT
  Age: 45 Year
  Sex: Female

DRUGS (6)
  1. CITALOPRAM HYDROBROMIDE [Suspect]
  2. DULOXETINE [Concomitant]
  3. IBUPROFEN [Concomitant]
  4. DEXTROMETHORPHAN [Concomitant]
  5. DIPHENHYDRAMINE HCL [Concomitant]
  6. CHLORPHENIRAMINE MALEATE [Concomitant]

REACTIONS (1)
  - DEATH [None]
